FAERS Safety Report 21075698 (Version 1)
Quarter: 2022Q3

REPORT INFORMATION
  Report Type: Spontaneous
  Country: US (occurrence: None)
  Receive Date: 20220712
  Receipt Date: 20220712
  Transmission Date: 20221026
  Serious: No
  Sender: FDA-Public Use
  Company Number: None

PATIENT
  Sex: Male
  Weight: 80.2 kg

DRUGS (17)
  1. ABIRATERONE ACETATE [Suspect]
     Active Substance: ABIRATERONE ACETATE
     Indication: Prostate cancer
     Dosage: FREQUENCY : DAILY;?
     Route: 048
     Dates: start: 202205
  2. COLACE [Concomitant]
  3. CHOLECALCIFEROL [Concomitant]
     Active Substance: CHOLECALCIFEROL
  4. FLOMAX [Concomitant]
  5. JOINTFLEX [Concomitant]
  6. LUCENTIS [Concomitant]
  7. LUMIGAN [Concomitant]
     Active Substance: BIMATOPROST
  8. LUTEIN [Concomitant]
     Active Substance: LUTEIN
  9. MULTIVITAMINS/MINERALS [Concomitant]
  10. PREDNISONE [Concomitant]
  11. MINERALS\VITAMINS [Concomitant]
     Active Substance: MINERALS\VITAMINS
  12. SALMON OIL-1000 [Concomitant]
  13. SUDAFED [Concomitant]
     Active Substance: PSEUDOEPHEDRINE HYDROCHLORIDE
  14. TUMERIC [Concomitant]
  15. VITAMIN C [Concomitant]
  16. ZOLADEX [Concomitant]
     Active Substance: GOSERELIN ACETATE
  17. ZYRTEC [Concomitant]
     Active Substance: CETIRIZINE HYDROCHLORIDE

REACTIONS (2)
  - Disease progression [None]
  - Prostatic specific antigen increased [None]
